FAERS Safety Report 5043895-3 (Version None)
Quarter: 2006Q2

REPORT INFORMATION
  Report Type: 
  Country: None (occurrence: None)
  Receive Date: 20060601
  Receipt Date: 20060220
  Transmission Date: 20061013
  Serious: No
  Sender: FDA-Public Use
  Company Number: US200602004003

PATIENT
  Age: 54 Year
  Sex: Female

DRUGS (6)
  1. CYMBALTA [Suspect]
     Indication: DEPRESSION
     Dosage: SEE IMAGE
     Dates: start: 20051226
  2. EFFEXOR [Concomitant]
  3. FLUOXETINE HCL [Concomitant]
  4. REMERON [Concomitant]
  5. KLONOPIN [Concomitant]
  6. RISPERDAL /SWE/(RISPERIDONE) [Concomitant]

REACTIONS (4)
  - ANXIETY [None]
  - ASTHENIA [None]
  - DRUG INEFFECTIVE [None]
  - STRESS [None]
